FAERS Safety Report 17147349 (Version 1)
Quarter: 2019Q4

REPORT INFORMATION
  Report Type: Report from Study
  Country: US (occurrence: US)
  Receive Date: 20191212
  Receipt Date: 20191212
  Transmission Date: 20200122
  Serious: Yes (Other)
  Sender: FDA-Public Use
  Company Number: US-INCYTE CORPORATION-2019IN012232

PATIENT

DRUGS (1)
  1. JAKAFI [Suspect]
     Active Substance: RUXOLITINIB
     Indication: THROMBOCYTOSIS
     Dosage: UNK
     Route: 048

REACTIONS (6)
  - Off label use [Unknown]
  - Feeling cold [Unknown]
  - Tremor [Unknown]
  - Blindness [Unknown]
  - Dizziness [Unknown]
  - Asthenia [Unknown]
